FAERS Safety Report 17189754 (Version 4)
Quarter: 2020Q2

REPORT INFORMATION
  Report Type: Report from Study
  Country: US (occurrence: US)
  Receive Date: 20191223
  Receipt Date: 20200527
  Transmission Date: 20200713
  Serious: No
  Sender: FDA-Public Use
  Company Number: NVSC2019US075888

PATIENT
  Sex: Female

DRUGS (3)
  1. COSENTYX [Suspect]
     Active Substance: SECUKINUMAB
     Indication: PSORIASIS
     Dosage: 300 MG, Q4W
     Route: 058
     Dates: start: 20160607
  2. COSENTYX [Suspect]
     Active Substance: SECUKINUMAB
     Indication: PSORIASIS
     Dosage: UNK
     Route: 065
     Dates: start: 20200208
  3. COSENTYX [Suspect]
     Active Substance: SECUKINUMAB
     Dosage: 300 MG, QMO
     Route: 058

REACTIONS (8)
  - Dry skin [Unknown]
  - Skin exfoliation [Not Recovered/Not Resolved]
  - Pain in extremity [Unknown]
  - Pain of skin [Recovered/Resolved]
  - Erythema [Recovered/Resolved]
  - Diverticulum [Recovered/Resolved]
  - Skin swelling [Recovered/Resolved]
  - Sticky skin [Unknown]
